FAERS Safety Report 8545177-1 (Version None)
Quarter: 2012Q3

REPORT INFORMATION
  Report Type: 
  Country: None (occurrence: None)
  Receive Date: 20120727
  Receipt Date: 20100813
  Transmission Date: 20120928
  Serious: Yes (Other)
  Sender: FDA-Public Use
  Company Number: AU-ROCHE-717069

PATIENT
  Sex: Female
  Weight: 67 kg

DRUGS (4)
  1. PHENERGAN HCL [Concomitant]
     Route: 042
  2. ACTEMRA [Suspect]
     Dosage: DOSE REDUCED
  3. ACTEMRA [Suspect]
     Indication: RHEUMATOID ARTHRITIS
     Dosage: FORM: INFUSION
     Route: 042
  4. HYDROCORTISONE [Concomitant]
     Route: 042

REACTIONS (7)
  - BLOOD PRESSURE DECREASED [None]
  - DYSPNOEA [None]
  - FEELING ABNORMAL [None]
  - MIGRAINE [None]
  - PERIPHERAL COLDNESS [None]
  - HYPERSENSITIVITY [None]
  - ERYTHEMA [None]
